FAERS Safety Report 9891236 (Version 1)
Quarter: 2014Q1

REPORT INFORMATION
  Report Type: Spontaneous
  Country: GB (occurrence: GB)
  Receive Date: 20140212
  Receipt Date: 20140212
  Transmission Date: 20141002
  Serious: Yes (Other)
  Sender: FDA-Public Use
  Company Number: GB-009507513-1402GBR003298

PATIENT
  Sex: Male

DRUGS (4)
  1. ZISPIN SOLTAB [Suspect]
     Dosage: 45 DF, UNK
     Route: 048
     Dates: end: 20140130
  2. SERTRALINE HYDROCHLORIDE [Suspect]
  3. OLANZAPINE [Concomitant]
  4. LITHIUM [Concomitant]

REACTIONS (3)
  - Gastrectomy [Unknown]
  - Gastrointestinal disorder [Unknown]
  - Dysphagia [Recovered/Resolved]
